APPROVED DRUG PRODUCT: TIOPRONIN
Active Ingredient: TIOPRONIN
Strength: 100MG
Dosage Form/Route: TABLET, DELAYED RELEASE;ORAL
Application: A217219 | Product #001 | TE Code: AB
Applicant: PH HEALTH LTD
Approved: Feb 24, 2023 | RLD: No | RS: No | Type: RX